FAERS Safety Report 12484649 (Version 2)
Quarter: 2016Q2

REPORT INFORMATION
  Report Type: Spontaneous
  Country: AU (occurrence: AU)
  Receive Date: 20160621
  Receipt Date: 20160627
  Transmission Date: 20160815
  Serious: Yes (Other)
  Sender: FDA-Public Use
  Company Number: AU-ASTELLAS-2016US010110

PATIENT
  Age: 21 Year
  Sex: Female
  Weight: 51 kg

DRUGS (2)
  1. BETMIGA [Suspect]
     Active Substance: MIRABEGRON
     Route: 048
     Dates: start: 20150801, end: 20150904
  2. BETMIGA [Suspect]
     Active Substance: MIRABEGRON
     Indication: HYPERTONIC BLADDER
     Route: 065

REACTIONS (3)
  - Weight increased [Recovered/Resolved]
  - Drug ineffective [Recovered/Resolved]
  - Oedema peripheral [Recovered/Resolved]

NARRATIVE: CASE EVENT DATE: 20150801
